FAERS Safety Report 8829145 (Version 1)
Quarter: 2012Q4

REPORT INFORMATION
  Report Type: 
  Country: US (occurrence: US)
  Receive Date: 20121008
  Receipt Date: 20121008
  Transmission Date: 20130627
  Serious: Yes (Other)
  Sender: FDA-Public Use
  Company Number: US-ROCHE-788249

PATIENT
  Sex: Female
  Weight: 73.55 kg

DRUGS (1)
  1. ACCUTANE [Suspect]
     Indication: ACNE CYSTIC
     Route: 065
     Dates: start: 2000, end: 2006

REACTIONS (8)
  - Inflammatory bowel disease [Unknown]
  - Diverticulitis [Unknown]
  - Depression [Unknown]
  - Ovarian cyst [Unknown]
  - Oesophagitis [Unknown]
  - Asphyxia [Unknown]
  - Irritable bowel syndrome [Unknown]
  - Oesophageal stenosis [Unknown]
